FAERS Safety Report 4435276-8 (Version None)
Quarter: 2004Q3

REPORT INFORMATION
  Report Type: 
  Country: None (occurrence: None)
  Receive Date: 20040826
  Receipt Date: 20040826
  Transmission Date: 20050211
  Serious: Yes (Life-Threatening, Hospitalization, Disabling, Other)
  Sender: FDA-Public Use
  Company Number: None

PATIENT
  Age: 41 Year
  Sex: Male
  Weight: 108.8633 kg

DRUGS (3)
  1. PAXIL [Suspect]
     Indication: ANXIETY
     Dosage: 60 MG
     Dates: start: 19950601, end: 20040701
  2. PAXIL [Suspect]
     Indication: DEPRESSION
     Dosage: 60 MG
     Dates: start: 19950601, end: 20040701
  3. PAXIL [Suspect]
     Indication: PANIC ATTACK
     Dosage: 60 MG
     Dates: start: 19950601, end: 20040701

REACTIONS (23)
  - ABNORMAL BEHAVIOUR [None]
  - ABNORMAL DREAMS [None]
  - AGGRESSION [None]
  - AGITATION [None]
  - ANXIETY [None]
  - CONDITION AGGRAVATED [None]
  - DEPRESSION [None]
  - DISTURBANCE IN ATTENTION [None]
  - DIVORCED [None]
  - DYSKINESIA [None]
  - FATIGUE [None]
  - HYPERSOMNIA [None]
  - IMPAIRED WORK ABILITY [None]
  - INSOMNIA [None]
  - INTENTIONAL OVERDOSE [None]
  - INTENTIONAL SELF-INJURY [None]
  - LEGAL PROBLEM [None]
  - LOSS OF EMPLOYMENT [None]
  - MARITAL PROBLEM [None]
  - NIGHTMARE [None]
  - SPOUSAL ABUSE [None]
  - SUICIDE ATTEMPT [None]
  - TREATMENT NONCOMPLIANCE [None]
